FAERS Safety Report 5224293-6 (Version None)
Quarter: 2007Q1

REPORT INFORMATION
  Report Type: 
  Country: None (occurrence: None)
  Receive Date: 20070130
  Receipt Date: 20070122
  Transmission Date: 20070707
  Serious: Yes (Death, Other)
  Sender: FDA-Public Use
  Company Number: US-ELI_LILLY_AND_COMPANY-US200611001422

PATIENT
  Age: 54 Year
  Sex: Male

DRUGS (1)
  1. XIGRIS [Suspect]
     Indication: SEPSIS
     Dosage: 24 UG, OTHER
     Route: 042
     Dates: start: 20060929, end: 20061003

REACTIONS (2)
  - HAEMORRHAGE [None]
  - SEPSIS [None]
